FAERS Safety Report 6347026-9 (Version None)
Quarter: 2009Q3

REPORT INFORMATION
  Report Type: 
  Country: None (occurrence: None)
  Receive Date: 20090909
  Receipt Date: 20090909
  Transmission Date: 20100115
  Serious: Yes (Other)
  Sender: FDA-Public Use
  Company Number: None

PATIENT
  Age: 15 Year
  Sex: Female
  Weight: 65.7716 kg

DRUGS (1)
  1. DOXYCYCLINE 100MG WEST-WARD [Suspect]
     Indication: RECURRING SKIN BOILS
     Dosage: ONE CAPSULE TWICE DAILY PO
     Route: 048
     Dates: start: 20090905, end: 20090905

REACTIONS (3)
  - ABDOMINAL PAIN UPPER [None]
  - HAEMATEMESIS [None]
  - OROPHARYNGEAL PAIN [None]
